FAERS Safety Report 6088238-1 (Version None)
Quarter: 2009Q1

REPORT INFORMATION
  Report Type: 
  Country: None (occurrence: None)
  Receive Date: 20090224
  Receipt Date: 20090122
  Transmission Date: 20090719
  Serious: No
  Sender: FDA-Public Use
  Company Number: US-BAYER-200910240BCC

PATIENT
  Age: 86 Year
  Sex: Female
  Weight: 68 kg

DRUGS (15)
  1. ALEVE (CAPLET) [Suspect]
     Indication: ARTHRALGIA
     Dosage: UNIT DOSE: 220 MG
     Dates: start: 20090114
  2. ALEVE (CAPLET) [Suspect]
     Dosage: UNIT DOSE: 220 MG
     Dates: start: 20090114
  3. AVASTIN [Concomitant]
  4. CRESTOR [Concomitant]
  5. MECLIZINE [Concomitant]
  6. FOSAMAX [Concomitant]
  7. LUTEIN [Concomitant]
  8. VITAMIN A [Concomitant]
  9. ASCORBIC ACID [Concomitant]
  10. VITAMIN D [Concomitant]
  11. VITAMIN E [Concomitant]
  12. CRANBERRY [Concomitant]
  13. GLUCOSAMINE CHONDROITIN [Concomitant]
  14. BETA CAROTENE [Concomitant]
  15. ASPIRIN [Concomitant]

REACTIONS (2)
  - ARTHRALGIA [None]
  - PAIN IN EXTREMITY [None]
